FAERS Safety Report 7481655-4 (Version None)
Quarter: 2011Q2

REPORT INFORMATION
  Report Type: 
  Country: None (occurrence: None)
  Receive Date: 20110516
  Receipt Date: 20110503
  Transmission Date: 20111010
  Serious: Yes (Hospitalization)
  Sender: FDA-Public Use
  Company Number: US-ELI_LILLY_AND_COMPANY-US201105002048

PATIENT
  Age: 73 Year
  Sex: Male

DRUGS (11)
  1. MIRTAZAPINE [Concomitant]
     Dosage: 15 MG, QD
     Route: 048
  2. BUPROPION [Concomitant]
     Dosage: 150 MG, QD
     Route: 048
  3. ZYPREXA ZYDIS [Suspect]
     Dosage: 5 MG, PRN
     Route: 048
  4. ZYPREXA ZYDIS [Suspect]
     Dosage: 10 MG, QD
     Route: 048
  5. TAMSULOSIN HCL [Concomitant]
     Dosage: 0.4 MG, QD
     Route: 048
  6. DOCUSATE [Concomitant]
     Dosage: 100 MG, BID
     Route: 048
  7. ZYPREXA ZYDIS [Suspect]
     Dosage: 5 MG, QD
     Route: 048
  8. VITAMIN D [Concomitant]
     Dosage: 50000 IU, WEEKLY (1/W)
     Route: 048
  9. ZYPREXA ZYDIS [Suspect]
     Indication: PSYCHOTIC DISORDER
     Dosage: 20 MG, QD
     Route: 048
  10. LORAZEPAM [Concomitant]
     Indication: ANXIETY
     Dosage: 3 MG, PRN
     Route: 048
  11. LEVOTHYROXINE SODIUM [Concomitant]
     Dosage: 50 UG, QD
     Route: 048

REACTIONS (7)
  - VITAMIN D DEFICIENCY [None]
  - MOVEMENT DISORDER [None]
  - HYPOTHYROIDISM [None]
  - OVERDOSE [None]
  - GAIT DISTURBANCE [None]
  - CAMPTOCORMIA [None]
  - BENIGN PROSTATIC HYPERPLASIA [None]
